FAERS Safety Report 4883540-0 (Version None)
Quarter: 2006Q1

REPORT INFORMATION
  Report Type: 
  Country: None (occurrence: None)
  Receive Date: 20060118
  Receipt Date: 20051031
  Transmission Date: 20060701
  Serious: Yes (Hospitalization)
  Sender: FDA-Public Use
  Company Number: DE-MERCK-0511DEU00012

PATIENT
  Age: 53 Year
  Sex: Male
  Weight: 102 kg

DRUGS (4)
  1. VIOXX [Suspect]
     Indication: ANKYLOSING SPONDYLITIS
     Route: 048
     Dates: start: 20030101, end: 20040701
  2. VIOXX [Suspect]
     Route: 065
     Dates: start: 20040802
  3. LEVOTHYROXINE SODIUM [Concomitant]
     Route: 048
  4. NITRENDIPINE [Concomitant]
     Route: 048

REACTIONS (13)
  - ACUTE MYOCARDIAL INFARCTION [None]
  - BLOOD PRESSURE INCREASED [None]
  - CORONARY ARTERY DISEASE [None]
  - DIVERTICULUM [None]
  - DRUG ADMINISTRATION ERROR [None]
  - GASTRIC ULCER [None]
  - GASTRITIS EROSIVE [None]
  - GASTROINTESTINAL HAEMORRHAGE [None]
  - HEPATIC STEATOSIS [None]
  - HYPERTENSION [None]
  - HYPERURICAEMIA [None]
  - MIXED HYPERLIPIDAEMIA [None]
  - REFLUX OESOPHAGITIS [None]
